FAERS Safety Report 9353267 (Version 1)
Quarter: 2013Q2

REPORT INFORMATION
  Report Type: Spontaneous
  Country: US (occurrence: None)
  Receive Date: 20130617
  Receipt Date: 20130617
  Transmission Date: 20140414
  Serious: Yes (Life-Threatening, Hospitalization, Other)
  Sender: FDA-Public Use
  Company Number: None

PATIENT
  Age: 69 Year
  Sex: Male
  Weight: 74.5 kg

DRUGS (2)
  1. WARFARIN [Suspect]
     Indication: PULMONARY EMBOLISM
     Dosage: MG   PO
     Route: 048
     Dates: start: 20130113, end: 20130222
  2. ASPIRIN [Suspect]
     Dosage: MG  EVERY DAY PO
     Route: 048
     Dates: start: 20110205

REACTIONS (1)
  - Gastric haemorrhage [None]
